FAERS Safety Report 6692125-5 (Version None)
Quarter: 2010Q2

REPORT INFORMATION
  Report Type: 
  Country: None (occurrence: None)
  Receive Date: 20100422
  Receipt Date: 20091016
  Transmission Date: 20101027
  Serious: No
  Sender: FDA-Public Use
  Company Number: US-ASTRAZENECA-2009SE05855

PATIENT
  Age: 52 Year
  Sex: Female
  Weight: 89.8 kg

DRUGS (8)
  1. TOPROL-XL [Suspect]
     Route: 048
  2. TOPROL-XL [Suspect]
     Route: 048
  3. BIOTIN [Concomitant]
  4. MULTI-VITAMIN [Concomitant]
  5. LORAZEPAM [Concomitant]
  6. WELLBUTRIN [Concomitant]
  7. PREMARIN [Concomitant]
  8. ATIVAN [Concomitant]

REACTIONS (6)
  - CARDIAC FLUTTER [None]
  - CHEST DISCOMFORT [None]
  - DYSPEPSIA [None]
  - DYSPNOEA [None]
  - FATIGUE [None]
  - MALAISE [None]
